FAERS Safety Report 8005636-7 (Version None)
Quarter: 2011Q4

REPORT INFORMATION
  Report Type: 
  Country: None (occurrence: None)
  Receive Date: 20111223
  Receipt Date: 20111222
  Transmission Date: 20120403
  Serious: Yes (Life-Threatening, Hospitalization)
  Sender: FDA-Public Use
  Company Number: FR-B.I. PHARMACEUTICALS,INC./RIDGEFIELD-2006-FF-00017FF

PATIENT
  Sex: Female
  Weight: 64 kg

DRUGS (8)
  1. COMBIVIR [Concomitant]
     Indication: HIV INFECTION
     Route: 048
     Dates: start: 20051206
  2. ACETAMINOPHEN [Concomitant]
     Indication: PYREXIA
  3. QUINIMAX [Concomitant]
     Dosage: 1.5 G
     Route: 048
     Dates: start: 20051228, end: 20051231
  4. ZYRTEC [Concomitant]
     Dosage: 10 MG
     Route: 048
     Dates: start: 20051206, end: 20060102
  5. OFLOXACIN [Concomitant]
     Indication: TYPHOID FEVER
     Dosage: 400 MG
     Route: 048
     Dates: start: 20051229, end: 20051231
  6. VIRAMUNE [Suspect]
     Indication: HIV INFECTION
     Dosage: 400 MG
     Route: 048
     Dates: start: 20051206, end: 20060102
  7. COARTEM [Concomitant]
     Indication: MALARIA PROPHYLAXIS
     Route: 048
     Dates: start: 20051225, end: 20051225
  8. QUINIMAX [Concomitant]
     Indication: MALARIA
     Dosage: 1.5 G
     Route: 042
     Dates: start: 20051226, end: 20051228

REACTIONS (4)
  - HEPATIC ENCEPHALOPATHY [None]
  - HEPATITIS FULMINANT [None]
  - HEPATIC FAILURE [None]
  - LIVER TRANSPLANT [None]
